FAERS Safety Report 22083078 (Version 1)
Quarter: 2023Q1

REPORT INFORMATION
  Report Type: Spontaneous
  Country: IT (occurrence: IT)
  Receive Date: 20230310
  Receipt Date: 20230310
  Transmission Date: 20230417
  Serious: Yes (Other)
  Sender: FDA-Public Use
  Company Number: IT-ELI_LILLY_AND_COMPANY-IT202302009770

PATIENT
  Age: 65 Year

DRUGS (7)
  1. PEMETREXED [Suspect]
     Active Substance: PEMETREXED
     Indication: Pleural mesothelioma
     Dosage: UNK, OTHER (500 MG/MQ EVERY 21 DAYS)
     Route: 065
     Dates: start: 20221116, end: 20230118
  2. ALIMTA [Suspect]
     Active Substance: PEMETREXED DISODIUM
     Indication: Pleural mesothelioma
     Dosage: UNK MG, OTHER (500 MG/MQ EVERY 21 DAYS)
     Route: 065
     Dates: start: 20220914, end: 20221026
  3. CARBOPLATIN [Suspect]
     Active Substance: CARBOPLATIN
     Indication: Pleural mesothelioma
     Dosage: UNK, OTHER (AUC (AREA UNDER THE CURVE) 5)
     Route: 065
     Dates: start: 20220914, end: 20230118
  4. LACTULOSE [Concomitant]
     Active Substance: LACTULOSE
     Indication: Product used for unknown indication
     Dosage: UNK(1 SPOON X3)
     Route: 065
  5. KETOPROFEN LYSINE [Concomitant]
     Active Substance: KETOPROFEN LYSINE
     Indication: Product used for unknown indication
     Dosage: UNK(1 WHEN NEEDED (Q.O.))
     Route: 065
  6. MORPHINE SULFATE [Concomitant]
     Active Substance: MORPHINE SULFATE
     Indication: Product used for unknown indication
     Dosage: 2 DROP, EVERY FOUR HOUR
     Route: 065
  7. Tavor [Concomitant]
     Indication: Product used for unknown indication
     Dosage: 1 DOSAGE FORM, AS NECESSARY(1 DOSAGE FORM, OTHER (1 TABLET WHEN NEEDED (Q.O.)))
     Route: 065

REACTIONS (1)
  - Malignant neoplasm progression [Unknown]
